FAERS Safety Report 24396678 (Version 1)
Quarter: 2024Q4

REPORT INFORMATION
  Report Type: Report from Study
  Country: OM (occurrence: OM)
  Receive Date: 20241004
  Receipt Date: 20241004
  Transmission Date: 20250115
  Serious: Yes (Hospitalization, Other)
  Sender: AUROBINDO
  Company Number: OM-AUROBINDO-AUR-APL-2024-047462

PATIENT
  Age: 10 Day
  Sex: Male

DRUGS (1)
  1. METFORMIN [Suspect]
     Active Substance: METFORMIN HYDROCHLORIDE
     Indication: Gestational diabetes
     Dosage: UNK
     Route: 065

REACTIONS (5)
  - Respiratory distress [Unknown]
  - Sepsis neonatal [Unknown]
  - Hypoglycaemia [Unknown]
  - Shoulder dystocia [Unknown]
  - Foetal exposure during pregnancy [Unknown]
